FAERS Safety Report 8513380-2 (Version None)
Quarter: 2012Q3

REPORT INFORMATION
  Report Type: 
  Country: None (occurrence: None)
  Receive Date: 20120717
  Receipt Date: 20120711
  Transmission Date: 20120928
  Serious: Yes (Death, Hospitalization, Other)
  Sender: FDA-Public Use
  Company Number: US-ABBOTT-12P-163-0955276-00

PATIENT
  Sex: Male

DRUGS (4)
  1. GOUT MEDICATION [Concomitant]
     Indication: GOUT
  2. HUMIRA [Suspect]
     Dates: start: 20070101, end: 20101201
  3. HUMIRA [Suspect]
     Indication: CROHN'S DISEASE
     Dates: start: 20050101, end: 20070101
  4. BETA BLOCKERS [Concomitant]
     Indication: HYPERTENSION

REACTIONS (5)
  - PNEUMONIA [None]
  - FISTULA [None]
  - LUNG NEOPLASM [None]
  - FATIGUE [None]
  - LUNG CARCINOMA CELL TYPE UNSPECIFIED STAGE IV [None]
